FAERS Safety Report 4368840-5 (Version None)
Quarter: 2004Q2

REPORT INFORMATION
  Report Type: 
  Country: None (occurrence: None)
  Receive Date: 20040525
  Receipt Date: 20040517
  Transmission Date: 20050107
  Serious: Yes (Other)
  Sender: FDA-Public Use
  Company Number: US-JNJFOC-20040503733

PATIENT
  Age: 70 Year
  Sex: Male
  Weight: 81.6475 kg

DRUGS (7)
  1. LEVAQUIN [Suspect]
     Indication: SINUS DISORDER
     Dosage: 750 MG
     Dates: start: 20040512
  2. INDERAL [Concomitant]
  3. ZOCOR [Concomitant]
  4. LASIX [Concomitant]
  5. PLAVIX [Concomitant]
  6. ACETYLSALICYLIC ACID SRT [Concomitant]
  7. NITRODUR PATCH (GLYCERYL TRINITARATE) PATCH [Concomitant]

REACTIONS (1)
  - DIPLOPIA [None]
